FAERS Safety Report 5288082-9 (Version None)
Quarter: 2007Q1

REPORT INFORMATION
  Report Type: 
  Country: None (occurrence: None)
  Receive Date: 20070116
  Receipt Date: 20061018
  Transmission Date: 20070707
  Serious: No
  Sender: FDA-Public Use
  Company Number: 2006SP003735

PATIENT
  Age: 55 Year
  Sex: Male
  Weight: 111.1313 kg

DRUGS (10)
  1. LUNESTA [Suspect]
     Indication: INSOMNIA
     Dosage: 2 MG;HS;ORAL
     Route: 048
     Dates: start: 20060928
  2. PIOGLITAZONE [Concomitant]
  3. HYDROCHLORIDE [Concomitant]
  4. SIMVASTATIN [Concomitant]
  5. GLUCOPHAGE [Concomitant]
  6. VASOTEC [Concomitant]
  7. DIABETA [Concomitant]
  8. METOPROLOL SUCCINATE [Concomitant]
  9. AMLODIPINE BESYLATE [Concomitant]
  10. PREVACID [Concomitant]

REACTIONS (2)
  - DRUG INEFFECTIVE [None]
  - INSOMNIA [None]
